FAERS Safety Report 13830935 (Version 4)
Quarter: 2018Q2

REPORT INFORMATION
  Report Type: Spontaneous
  Country: PT (occurrence: PT)
  Receive Date: 20170803
  Receipt Date: 20180530
  Transmission Date: 20180711
  Serious: Yes (Hospitalization)
  Sender: FDA-Public Use
  Company Number: PT-BAUSCH-BL-2017-022940

PATIENT
  Age: 90 Year
  Sex: Male

DRUGS (1)
  1. TIMOLOL MALEATE. [Suspect]
     Active Substance: TIMOLOL MALEATE
     Indication: ANGLE CLOSURE GLAUCOMA
     Route: 047

REACTIONS (20)
  - Hypoxia [Unknown]
  - Muscular weakness [Recovered/Resolved]
  - Bundle branch block left [Unknown]
  - Supraventricular extrasystoles [Unknown]
  - Tremor [Recovered/Resolved]
  - Bradycardia [Recovered/Resolved]
  - Hypothermia [Recovered/Resolved]
  - Hyperkalaemia [Unknown]
  - Metabolic acidosis [Unknown]
  - Atrioventricular block [Unknown]
  - Bundle branch block right [Unknown]
  - Asthenia [Recovered/Resolved]
  - Hypotension [Recovered/Resolved]
  - Presyncope [Recovered/Resolved]
  - Hyperglycaemia [Recovered/Resolved]
  - Acute kidney injury [Unknown]
  - Haemodynamic instability [Recovered/Resolved]
  - Tachypnoea [Recovered/Resolved]
  - Ventricular extrasystoles [Unknown]
  - Conduction disorder [Recovered/Resolved]
